FAERS Safety Report 8559329-8 (Version None)
Quarter: 2012Q3

REPORT INFORMATION
  Report Type: 
  Country: None (occurrence: None)
  Receive Date: 20120720
  Receipt Date: 20120530
  Transmission Date: 20120928
  Serious: Yes (Death)
  Sender: FDA-Public Use
  Company Number: TOR 2012-0019

PATIENT
  Age: 84 Year
  Sex: Female

DRUGS (1)
  1. FARESTON [Suspect]
     Indication: BREAST CANCER
     Dosage: 120 MG, ORAL
     Route: 048
     Dates: start: 20110915, end: 20120501

REACTIONS (2)
  - INTERSTITIAL LUNG DISEASE [None]
  - CONDITION AGGRAVATED [None]
